FAERS Safety Report 6470837-6 (Version None)
Quarter: 2009Q4

REPORT INFORMATION
  Report Type: 
  Country: None (occurrence: None)
  Receive Date: 20091203
  Receipt Date: 20080105
  Transmission Date: 20100525
  Serious: Yes (Hospitalization)
  Sender: FDA-Public Use
  Company Number: US-ELI_LILLY_AND_COMPANY-US200801000950

PATIENT
  Sex: Male

DRUGS (6)
  1. BYETTA [Suspect]
     Indication: TYPE 2 DIABETES MELLITUS
     Dosage: 5 UG, 2/D
     Route: 058
     Dates: start: 20071201
  2. LISINOPRIL [Concomitant]
     Dosage: 2.5 MG, UNK
  3. LASIX [Concomitant]
     Dosage: 20 MG, DAILY (1/D)
  4. POTASSIUM [Concomitant]
  5. TOPROL-XL [Concomitant]
  6. NORVASC [Concomitant]
     Dosage: 5 UG, UNK

REACTIONS (1)
  - CARDIAC FAILURE CONGESTIVE [None]
